FAERS Safety Report 13489420 (Version 1)
Quarter: 2017Q2

REPORT INFORMATION
  Report Type: Spontaneous
  Country: US (occurrence: US)
  Receive Date: 20170427
  Receipt Date: 20170427
  Transmission Date: 20170830
  Serious: No
  Sender: FDA-Public Use
  Company Number: US-BAYER-2017-080179

PATIENT
  Sex: Female

DRUGS (1)
  1. CLARITIN [Suspect]
     Active Substance: LORATADINE
     Indication: LARYNGITIS
     Dosage: UNK
     Route: 048
     Dates: start: 20170427

REACTIONS (2)
  - Off label use [Unknown]
  - Pyrexia [Unknown]
